FAERS Safety Report 8163678 (Version 3)
Quarter: 2013Q4

REPORT INFORMATION
  Report Type: Report from Study
  Country: US (occurrence: US)
  Receive Date: 20110930
  Receipt Date: 20131114
  Transmission Date: 20140711
  Serious: Yes (Hospitalization)
  Sender: FDA-Public Use
  Company Number: US-JNJFOC-20110908711

PATIENT
  Age: 54 Year
  Sex: Male
  Weight: 94.35 kg

DRUGS (9)
  1. INFLIXIMAB, RECOMBINANT [Suspect]
     Indication: PSORIASIS
     Route: 042
     Dates: start: 201007, end: 201012
  2. CYCLOSPORINE [Suspect]
     Indication: PSORIASIS
     Route: 048
  3. ADALIMUMAB [Suspect]
     Indication: PRODUCT USED FOR UNKNOWN INDICATION
     Route: 065
     Dates: start: 201003, end: 201007
  4. ATENOLOL [Concomitant]
     Indication: HYPERTENSION
     Route: 048
  5. NAPROXEN [Concomitant]
     Indication: PAIN
  6. COZAAR [Concomitant]
     Indication: HYPERTENSION
     Route: 048
  7. TUMS [Concomitant]
     Indication: DYSPEPSIA
  8. TRAZODONE [Concomitant]
     Route: 048
  9. MAGNESIUM [Concomitant]
     Route: 048

REACTIONS (1)
  - Transient ischaemic attack [Recovered/Resolved with Sequelae]
